FAERS Safety Report 7511080-9 (Version None)
Quarter: 2011Q2

REPORT INFORMATION
  Report Type: 
  Country: None (occurrence: None)
  Receive Date: 20110531
  Receipt Date: 20110517
  Transmission Date: 20111010
  Serious: Yes (Hospitalization)
  Sender: FDA-Public Use
  Company Number: FR-JNJFOC-20110509562

PATIENT
  Sex: Female

DRUGS (8)
  1. BACTRIM [Suspect]
     Indication: SUPERINFECTION
     Route: 048
     Dates: start: 20110206, end: 20110212
  2. CIPROFLAXACIN [Suspect]
     Indication: SUPERINFECTION
     Route: 048
     Dates: start: 20110206, end: 20110212
  3. PREVISCAN (FLUINDIONE) [Concomitant]
     Indication: ATRIAL FIBRILLATION
     Route: 048
  4. DURAGESIC-100 [Suspect]
     Route: 062
  5. FUROSEMIDE [Suspect]
     Indication: PRODUCT USED FOR UNKNOWN INDICATION
     Route: 048
  6. DURAGESIC-100 [Suspect]
     Indication: PRODUCT USED FOR UNKNOWN INDICATION
     Route: 062
     Dates: end: 20110212
  7. FUROSEMIDE [Suspect]
     Route: 048
     Dates: end: 20110212
  8. VALSARTAN [Suspect]
     Indication: PRODUCT USED FOR UNKNOWN INDICATION
     Route: 048
     Dates: end: 20110212

REACTIONS (2)
  - CONFUSIONAL STATE [None]
  - RENAL FAILURE ACUTE [None]
